FAERS Safety Report 25614884 (Version 1)
Quarter: 2025Q3

REPORT INFORMATION
  Report Type: Spontaneous
  Country: US (occurrence: US)
  Receive Date: 20250729
  Receipt Date: 20250729
  Transmission Date: 20251021
  Serious: Yes (Hospitalization)
  Sender: ACCORD
  Company Number: US-MLMSERVICE-20250711-PI572854-00271-1

PATIENT
  Age: 84 Year
  Sex: Male

DRUGS (2)
  1. METHOTREXATE [Suspect]
     Active Substance: METHOTREXATE
     Indication: Rheumatoid arthritis
     Dates: start: 2018, end: 202306
  2. PREDNISONE [Suspect]
     Active Substance: PREDNISONE
     Indication: Rheumatoid arthritis
     Dates: start: 2018, end: 202306

REACTIONS (5)
  - Mouth ulceration [Recovering/Resolving]
  - Oesophageal ulcer [Recovering/Resolving]
  - Cryptococcosis [Recovering/Resolving]
  - Infectious pleural effusion [Recovering/Resolving]
  - Pneumonia cryptococcal [Recovering/Resolving]

NARRATIVE: CASE EVENT DATE: 20230501
